FAERS Safety Report 18381032 (Version 1)
Quarter: 2020Q4

REPORT INFORMATION
  Report Type: Spontaneous
  Country: US (occurrence: US)
  Receive Date: 20201014
  Receipt Date: 20201014
  Transmission Date: 20210114
  Serious: No
  Sender: FDA-Public Use
  Company Number: US-SA-2020SA281313

PATIENT

DRUGS (5)
  1. ZYRTEC [Concomitant]
     Active Substance: CETIRIZINE HYDROCHLORIDE
  2. METFORMIN [Concomitant]
     Active Substance: METFORMIN HYDROCHLORIDE
     Dosage: ER GASTRIC
  3. DUPIXENT [Suspect]
     Active Substance: DUPILUMAB
     Indication: DERMATITIS ATOPIC
     Dosage: 300 MG, QOW
     Route: 058
     Dates: start: 201910
  4. DUPIXENT [Suspect]
     Active Substance: DUPILUMAB
     Indication: DERMATITIS
  5. DUPIXENT [Suspect]
     Active Substance: DUPILUMAB
     Indication: MELANOCYTIC NAEVUS

REACTIONS (6)
  - Skin fissures [Unknown]
  - Dry skin [Unknown]
  - Product use in unapproved indication [Unknown]
  - Skin exfoliation [Unknown]
  - Pruritus [Unknown]
  - Sleep disorder [Unknown]
